FAERS Safety Report 17036784 (Version 2)
Quarter: 2019Q4

REPORT INFORMATION
  Report Type: Spontaneous
  Country: US (occurrence: US)
  Receive Date: 20191115
  Receipt Date: 20191209
  Transmission Date: 20200122
  Serious: No
  Sender: FDA-Public Use
  Company Number: US-009507513-1910USA012729

PATIENT
  Age: 23 Year
  Sex: Female
  Weight: 84.35 kg

DRUGS (2)
  1. PROVENTIL [Suspect]
     Active Substance: ALBUTEROL
     Indication: ASTHMA
     Dosage: 90 MICROGRAM, Q4HRS
     Route: 055
     Dates: start: 20170827
  2. NEXPLANON [Suspect]
     Active Substance: ETONOGESTREL
     Indication: CONTRACEPTION
     Dosage: FIRST IMPLANT, FREQUENCY REPORTED AS EVERY 3 YEARS (Q3YRS) IN LEFT ARM
     Route: 059
     Dates: start: 20191016

REACTIONS (2)
  - No adverse event [Unknown]
  - Device deployment issue [Recovered/Resolved]

NARRATIVE: CASE EVENT DATE: 20191016
